FAERS Safety Report 9104202 (Version 3)
Quarter: 2013Q2

REPORT INFORMATION
  Report Type: Spontaneous
  Country: US (occurrence: US)
  Receive Date: 20130219
  Receipt Date: 20130410
  Transmission Date: 20140414
  Serious: Yes (Other)
  Sender: FDA-Public Use
  Company Number: US-PFIZER INC-2013060117

PATIENT
  Age: 86 Year
  Sex: Male

DRUGS (17)
  1. SUTENT [Suspect]
     Indication: RENAL CANCER
     Dosage: 50 MG, UNK
     Route: 048
     Dates: start: 20130128
  2. ALLEGRA [Concomitant]
     Indication: HYPERSENSITIVITY
     Dosage: UNK
  3. ALLOPURINOL [Concomitant]
     Dosage: UNK
  4. CALCIUM [Concomitant]
     Dosage: 1200
  5. FOLIC ACID [Concomitant]
     Dosage: UNK
  6. IRON [Concomitant]
     Dosage: UNK
  7. LIPITOR [Concomitant]
     Dosage: UNK
  8. LISINOPRIL [Concomitant]
     Dosage: UNK
  9. MECLIZINE HYDROCHLORIDE [Concomitant]
     Dosage: UNK
  10. METOPROLOL SUCCINATE [Concomitant]
     Dosage: UNK
  11. PHENAZOPYRIDINE HYDROCHLORIDE [Concomitant]
     Dosage: UNK
  12. PREDNISONE [Concomitant]
     Dosage: UNK
  13. PREVACID [Concomitant]
     Dosage: UNK
  14. PROPYLENE GLYCOL [Concomitant]
     Dosage: UNK
  15. TYLENOL [Concomitant]
     Dosage: UNK
  16. VALIUM [Concomitant]
     Dosage: UNK
  17. LUPRON DEPOT [Concomitant]
     Dosage: UNK

REACTIONS (6)
  - Penile haemorrhage [Unknown]
  - Exophthalmos [Unknown]
  - Epistaxis [Unknown]
  - Ocular icterus [Unknown]
  - Erythema of eyelid [Unknown]
  - Blood urine present [Unknown]
